FAERS Safety Report 8972793 (Version 4)
Quarter: 2013Q2

REPORT INFORMATION
  Report Type: Spontaneous
  Country: NL (occurrence: None)
  Receive Date: 20121207
  Receipt Date: 20130405
  Transmission Date: 20140414
  Serious: Yes (Hospitalization)
  Sender: FDA-Public Use
  Company Number: ACO_33183_2012

PATIENT
  Age: 52 Year
  Sex: Female

DRUGS (5)
  1. FAMPYRA (DALFAMPRIDINE) TABLET, 10MG [Suspect]
     Indication: PRODUCT USED FOR UNKNOWN INDICATION
     Route: 048
     Dates: start: 201207, end: 20121126
  2. TYSABRI (NATALIZUMAB) [Concomitant]
  3. MODIODAL (MODAFINIL) [Concomitant]
  4. SEROXAT (PAROXETINE HYDROCHLORIDE) [Concomitant]
  5. PANTOZOL (PANTOPRAZOLE SODIUM SESQUIHYDRATE) [Concomitant]

REACTIONS (2)
  - Renal impairment [None]
  - Glomerulonephritis [None]
